FAERS Safety Report 8238936-6 (Version None)
Quarter: 2012Q1

REPORT INFORMATION
  Report Type: 
  Country: None (occurrence: None)
  Receive Date: 20120327
  Receipt Date: 20120301
  Transmission Date: 20120608
  Serious: Yes (Hospitalization)
  Sender: FDA-Public Use
  Company Number: US-ROCHE-1047335

PATIENT
  Sex: Male

DRUGS (13)
  1. PREDNISONE TAB [Suspect]
     Indication: RENAL TRANSPLANT
     Dates: start: 20110922
  2. TRAZODONE HCL [Concomitant]
     Dates: start: 20111006
  3. MIRALAX [Concomitant]
     Dates: start: 20110922
  4. INSULIN [Concomitant]
     Dates: start: 20070417
  5. BELATACEPT [Suspect]
     Indication: RENAL TRANSPLANT
     Route: 042
     Dates: start: 20070417
  6. RANITIDINE [Concomitant]
     Dates: start: 20111012
  7. METOPROLOL TARTRATE [Concomitant]
     Dates: start: 20110918
  8. MULTI-VITAMIN [Concomitant]
     Dates: start: 20070624
  9. NPH INSULIN [Concomitant]
     Dates: start: 20111213
  10. CIALIS [Concomitant]
     Dates: start: 20110413
  11. MYCOPHENOLATE MOFETIL (CELLCEPT) [Suspect]
     Indication: RENAL TRANSPLANT
     Dates: start: 20110919
  12. METFORMIN HCL [Concomitant]
     Dates: start: 20111220
  13. ASPIRIN [Concomitant]
     Dates: start: 20110707

REACTIONS (1)
  - PNEUMONIA ASPIRATION [None]
